FAERS Safety Report 14246695 (Version 1)
Quarter: 2017Q4

REPORT INFORMATION
  Report Type: Spontaneous
  Country: US (occurrence: US)
  Receive Date: 20171201
  Receipt Date: 20171201
  Transmission Date: 20180321
  Serious: Yes (Disabling)
  Sender: FDA-Public Use
  Company Number: None

PATIENT
  Age: 67 Year
  Sex: Female
  Weight: 90 kg

DRUGS (2)
  1. COMPOUNDED VANCOMYCIN [Suspect]
     Active Substance: VANCOMYCIN HYDROCHLORIDE
     Indication: CATARACT OPERATION
     Dosage: ?          OTHER FREQUENCY:SINGLE DOSE;?
     Route: 047
     Dates: start: 20140220
  2. COMPOUNDED VANCOMYCIN [Suspect]
     Active Substance: VANCOMYCIN HYDROCHLORIDE
     Indication: POSTOPERATIVE CARE
     Dosage: ?          OTHER FREQUENCY:SINGLE DOSE;?
     Route: 047
     Dates: start: 20140220

REACTIONS (4)
  - Retinal haemorrhage [None]
  - Visual acuity reduced [None]
  - Retinal vascular disorder [None]
  - Hypercoagulation [None]

NARRATIVE: CASE EVENT DATE: 20140220
